FAERS Safety Report 24864701 (Version 1)
Quarter: 2025Q1

REPORT INFORMATION
  Report Type: Spontaneous
  Country: US (occurrence: US)
  Receive Date: 20250121
  Receipt Date: 20250121
  Transmission Date: 20250408
  Serious: Yes (Other)
  Sender: ABBVIE
  Company Number: US-ABBVIE-6086592

PATIENT
  Sex: Female

DRUGS (4)
  1. HUMIRA [Suspect]
     Active Substance: ADALIMUMAB
     Indication: Product used for unknown indication
     Route: 058
  2. STELARA [Suspect]
     Active Substance: USTEKINUMAB
     Indication: Product used for unknown indication
     Route: 065
  3. REMICADE [Suspect]
     Active Substance: INFLIXIMAB
     Indication: Product used for unknown indication
     Route: 065
  4. DEPO-PROVERA [Suspect]
     Active Substance: MEDROXYPROGESTERONE ACETATE
     Indication: Product used for unknown indication
     Route: 065

REACTIONS (13)
  - Intestinal obstruction [Unknown]
  - Impaired gastric emptying [Unknown]
  - Myalgia [Unknown]
  - Erythema [Unknown]
  - Dysphagia [Unknown]
  - Skin burning sensation [Unknown]
  - Dysuria [Unknown]
  - Alopecia [Unknown]
  - Pruritus [Unknown]
  - Respiratory arrest [Unknown]
  - Hormone level abnormal [Unknown]
  - Anxiety [Unknown]
  - Muscular weakness [Unknown]
